FAERS Safety Report 7288345-1 (Version None)
Quarter: 2011Q1

REPORT INFORMATION
  Report Type: 
  Country: None (occurrence: None)
  Receive Date: 20110211
  Receipt Date: 20110205
  Transmission Date: 20110831
  Serious: Yes (Death)
  Sender: FDA-Public Use
  Company Number: IT-ROCHE-758188

PATIENT
  Sex: Female

DRUGS (3)
  1. METOTREXATO [Concomitant]
     Route: 030
     Dates: start: 20050401, end: 20100901
  2. OMEPRAZOLE [Concomitant]
     Route: 048
     Dates: start: 20050101, end: 20100901
  3. ROACTEMRA [Suspect]
     Indication: RHEUMATOID ARTHRITIS
     Route: 042
     Dates: start: 20050726, end: 20100720

REACTIONS (1)
  - NEUROENDOCRINE CARCINOMA [None]
